FAERS Safety Report 18620590 (Version 1)
Quarter: 2020Q4

REPORT INFORMATION
  Report Type: Report from Study
  Country: US (occurrence: US)
  Receive Date: 20201216
  Receipt Date: 20201216
  Transmission Date: 20210114
  Serious: Yes (Hospitalization)
  Sender: FDA-Public Use
  Company Number: US-JNJFOC-20201226496

PATIENT
  Age: 25 Year
  Sex: Female
  Weight: 115 kg

DRUGS (1)
  1. INFLIXIMAB, RECOMBINANT [Suspect]
     Active Substance: INFLIXIMAB
     Indication: INFLAMMATORY BOWEL DISEASE
     Route: 042
     Dates: start: 20060703

REACTIONS (1)
  - Oesophageal rupture [Recovered/Resolved]

NARRATIVE: CASE EVENT DATE: 202006
